FAERS Safety Report 8564681-3 (Version None)
Quarter: 2012Q3

REPORT INFORMATION
  Report Type: 
  Country: None (occurrence: None)
  Receive Date: 20120803
  Receipt Date: 20120720
  Transmission Date: 20120928
  Serious: Yes (Other)
  Sender: FDA-Public Use
  Company Number: US-MYLANLABS-2012S1015115

PATIENT
  Age: 28 Year
  Sex: Male

DRUGS (8)
  1. TOPIRAMATE [Suspect]
     Dosage: 50 MG/DAY
  2. DUROPHET [Concomitant]
     Indication: ATTENTION DEFICIT/HYPERACTIVITY DISORDER
     Dosage: 20MG AT 8AM, 12PM AND 5PM
     Route: 065
  3. PROPRANOLOL [Concomitant]
     Indication: HYPERTENSION
     Route: 065
  4. LISINOPRIL [Concomitant]
     Indication: HYPERTENSION
     Dosage: 10MG DAILY
     Route: 065
  5. TOPIRAMATE [Suspect]
     Indication: COMPLEX PARTIAL SEIZURES
     Route: 065
  6. TOPIRAMATE [Suspect]
     Route: 065
  7. VALPROATE SODIUM [Concomitant]
     Indication: INTERMITTENT EXPLOSIVE DISORDER
     Dosage: 1000MG AT BEDTIME
  8. CLONIDINE [Concomitant]
     Indication: HYPERTENSION
     Dosage: 0.1MG IN THE MORNING
     Route: 065

REACTIONS (3)
  - SOCIAL AVOIDANT BEHAVIOUR [None]
  - AGGRESSION [None]
  - ABNORMAL BEHAVIOUR [None]
